FAERS Safety Report 16156264 (Version 1)
Quarter: 2019Q2

REPORT INFORMATION
  Report Type: Spontaneous
  Country: MX (occurrence: MX)
  Receive Date: 20190404
  Receipt Date: 20190404
  Transmission Date: 20190711
  Serious: Yes (Hospitalization, Other)
  Sender: FDA-Public Use
  Company Number: MX-ASTRAZENECA-2019SE51462

PATIENT
  Age: 27156 Day
  Sex: Female
  Weight: 48 kg

DRUGS (7)
  1. INSULIN GLARGINE [Concomitant]
     Active Substance: INSULIN GLARGINE
     Indication: DIABETES MELLITUS
     Route: 058
     Dates: start: 20170327
  2. METFORMIN [Concomitant]
     Active Substance: METFORMIN HYDROCHLORIDE
     Indication: DIABETES MELLITUS
     Dosage: UNKNOWN
     Route: 065
  3. LACTIC ACID. [Concomitant]
     Active Substance: LACTIC ACID
     Indication: GASTRITIS
     Dates: start: 20170327
  4. CEFTRIAXONA [Concomitant]
     Active Substance: CEFTRIAXONE
     Dosage: UNKNOWN
     Route: 065
  5. LACTIC ACID. [Concomitant]
     Active Substance: LACTIC ACID
     Indication: GASTRITIS
     Dosage: 2 MILLION DAILY
     Route: 048
     Dates: start: 20170327
  6. FORXIGA [Suspect]
     Active Substance: DAPAGLIFLOZIN
     Indication: DIABETES MELLITUS
     Route: 048
     Dates: start: 20160927
  7. LOSARTAN. [Concomitant]
     Active Substance: LOSARTAN
     Indication: HYPERTENSION
     Route: 048
     Dates: start: 20170327

REACTIONS (3)
  - Gastritis [Recovered/Resolved]
  - Diarrhoea [Recovered/Resolved]
  - Hypertension [Not Recovered/Not Resolved]

NARRATIVE: CASE EVENT DATE: 20170327
